FAERS Safety Report 19998572 (Version 4)
Quarter: 2021Q4

REPORT INFORMATION
  Report Type: Spontaneous
  Country: ES (occurrence: ES)
  Receive Date: 20211027
  Receipt Date: 20211215
  Transmission Date: 20220303
  Serious: Yes (Other)
  Sender: FDA-Public Use
  Company Number: ES-CELLTRION INC.-2021ES014374

PATIENT

DRUGS (10)
  1. RITUXIMAB [Suspect]
     Active Substance: RITUXIMAB
     Indication: Waldenstrom^s macroglobulinaemia
     Dosage: UNK
     Route: 065
  2. RITUXIMAB [Suspect]
     Active Substance: RITUXIMAB
     Indication: Acquired Von Willebrand^s disease
     Dosage: UNK
  3. RITUXIMAB [Suspect]
     Active Substance: RITUXIMAB
     Dosage: UNK
     Route: 065
  4. BORTEZOMIB [Suspect]
     Active Substance: BORTEZOMIB
     Indication: Waldenstrom^s macroglobulinaemia
     Dosage: UNK
     Route: 058
  5. BORTEZOMIB [Suspect]
     Active Substance: BORTEZOMIB
     Indication: Acquired Von Willebrand^s disease
     Route: 058
  6. BORTEZOMIB [Suspect]
     Active Substance: BORTEZOMIB
     Indication: Waldenstrom^s macroglobulinaemia
  7. IBRUTINIB [Suspect]
     Active Substance: IBRUTINIB
     Indication: Acquired Von Willebrand^s disease
     Dosage: ADDITIONAL INFO: ADDITIONAL INFO: ACTION TAKEN: INITIALLY DISCONTINUED AND THEN RE-STARTED AND THERA
  8. IBRUTINIB [Suspect]
     Active Substance: IBRUTINIB
     Indication: Waldenstrom^s macroglobulinaemia
     Dosage: 420 MILLIGRAM DAILY; ADDITIONAL INFO: ADDITIONAL INFO: ACTION TAKEN: INITIALLY DISCONTINUED AND THEN
     Route: 048
  9. DEXAMETHASONE [Concomitant]
     Active Substance: DEXAMETHASONE
     Indication: Waldenstrom^s macroglobulinaemia
     Dosage: UNK
     Route: 065
  10. DEXAMETHASONE [Concomitant]
     Active Substance: DEXAMETHASONE
     Indication: Acquired Von Willebrand^s disease
     Dosage: UNK

REACTIONS (9)
  - Acquired Von Willebrand^s disease [Recovered/Resolved]
  - Condition aggravated [Recovered/Resolved]
  - Rebound effect [Recovered/Resolved]
  - Waldenstrom^s macroglobulinaemia [Recovered/Resolved]
  - Neuropathy peripheral [Unknown]
  - Blood immunoglobulin M increased [Unknown]
  - Blood immunoglobulin M increased [Unknown]
  - Off label use [Unknown]
  - Off label use [Unknown]
